FAERS Safety Report 22531325 (Version 1)
Quarter: 2023Q2

REPORT INFORMATION
  Report Type: Spontaneous
  Country: US (occurrence: None)
  Receive Date: 20230606
  Receipt Date: 20230606
  Transmission Date: 20230722
  Serious: No
  Sender: FDA-Public Use
  Company Number: None

PATIENT
  Age: 32 Year
  Sex: Female

DRUGS (1)
  1. RINVOQ [Suspect]
     Active Substance: UPADACITINIB

REACTIONS (5)
  - Food craving [None]
  - Diarrhoea [None]
  - Kidney infection [None]
  - Weight increased [None]
  - Nausea [None]

NARRATIVE: CASE EVENT DATE: 20230211
